FAERS Safety Report 21333842 (Version 20)
Quarter: 2023Q2

REPORT INFORMATION
  Report Type: Report from Study
  Country: CA (occurrence: CA)
  Receive Date: 20220914
  Receipt Date: 20230620
  Transmission Date: 20230722
  Serious: Yes (Hospitalization, Other)
  Sender: FDA-Public Use
  Company Number: CA-BRISTOL-MYERS SQUIBB COMPANY-BMS-2019-121179

PATIENT
  Age: 72 Year
  Sex: Male

DRUGS (86)
  1. ELIQUIS [Suspect]
     Active Substance: APIXABAN
     Dosage: UNK
     Route: 065
  2. LEVOFLOXACIN [Suspect]
     Active Substance: LEVOFLOXACIN
     Dosage: 500 MILLIGRAM, 1 EVERY 1 (DAYS)
     Route: 065
  3. AMOXICILLIN AND CLAVULANATE POTASSIUM [Suspect]
     Active Substance: AMOXICILLIN\CLAVULANATE POTASSIUM
     Dosage: UNK
  4. DOXAZOSIN MESYLATE [Suspect]
     Active Substance: DOXAZOSIN MESYLATE
     Dosage: 0.5 MG
  5. DOXAZOSIN MESYLATE [Suspect]
     Active Substance: DOXAZOSIN MESYLATE
     Dosage: 5 MG
  6. ESCITALOPRAM OXALATE [Suspect]
     Active Substance: ESCITALOPRAM OXALATE
     Dosage: 10 MILLIGRAM
  7. ESCITALOPRAM OXALATE [Suspect]
     Active Substance: ESCITALOPRAM OXALATE
     Dosage: 10 MG, 1X/DAY
  8. ESCITALOPRAM OXALATE [Suspect]
     Active Substance: ESCITALOPRAM OXALATE
     Dosage: 2 DF, 1X/DAY
  9. ESCITALOPRAM OXALATE [Suspect]
     Active Substance: ESCITALOPRAM OXALATE
     Dosage: 10 MG, 2X/DAY
  10. MOXIFLOXACIN HYDROCHLORIDE [Suspect]
     Active Substance: MOXIFLOXACIN HYDROCHLORIDE
     Dosage: UNK
     Route: 065
  11. PREDNISONE [Suspect]
     Active Substance: PREDNISONE
     Dosage: 15 MG, 1X/DAY
     Route: 065
  12. PREDNISONE [Suspect]
     Active Substance: PREDNISONE
     Dosage: 10 MG, 1X/DAY
  13. PREDNISONE [Suspect]
     Active Substance: PREDNISONE
     Dosage: 10 MG
  14. ALBUTEROL [Suspect]
     Active Substance: ALBUTEROL
     Indication: Asthma
     Dosage: METERED DOSE, AEROSOL(AEROSOL FOR INHALATION)
     Route: 065
  15. ALBUTEROL [Suspect]
     Active Substance: ALBUTEROL
     Dosage: METERED DOSE, AEROSOL
  16. ALBUTEROL SULFATE [Suspect]
     Active Substance: ALBUTEROL SULFATE
     Indication: Asthma
     Dosage: 2 DF, 1X/DAY (METERED DOSE (AEROSOL))
     Route: 065
  17. SPIRIVA [Suspect]
     Active Substance: TIOTROPIUM BROMIDE MONOHYDRATE
     Dosage: 2 DOSAGE FORM, 1 EVERY 1 (DAYS)
     Route: 065
  18. SPIRIVA [Suspect]
     Active Substance: TIOTROPIUM BROMIDE MONOHYDRATE
     Dosage: 2 DOSAGE FORM, 1 EVERY 1 (DAYS)
     Route: 065
  19. DILTIAZEM [Suspect]
     Active Substance: DILTIAZEM
     Dosage: 12 MILLIGRAM, EXTENDED RELEASE
  20. DILTIAZEM [Suspect]
     Active Substance: DILTIAZEM
     Dosage: 120 MG
  21. DILTIAZEM [Suspect]
     Active Substance: DILTIAZEM
     Dosage: 120 MG
  22. DILTIAZEM [Suspect]
     Active Substance: DILTIAZEM
     Dosage: 4 MG
  23. DILTIAZEM [Suspect]
     Active Substance: DILTIAZEM
     Dosage: 12 MG
  24. ZENHALE [Suspect]
     Active Substance: FORMOTEROL FUMARATE\MOMETASONE FUROATE
     Dosage: 2 DF, 2X/DAY. METERED DOSE(AEROSOL FOR INHALATION)
  25. ZENHALE [Suspect]
     Active Substance: FORMOTEROL FUMARATE\MOMETASONE FUROATE
     Dosage: 10 MG, METERED DOSE
  26. ZENHALE [Suspect]
     Active Substance: FORMOTEROL FUMARATE\MOMETASONE FUROATE
     Dosage: 100 MG, 1X/DAY. METERED DOSE
  27. ZENHALE [Suspect]
     Active Substance: FORMOTEROL FUMARATE\MOMETASONE FUROATE
     Dosage: 500 MG, QD METERED DOSE
     Route: 065
  28. ZENHALE [Suspect]
     Active Substance: FORMOTEROL FUMARATE\MOMETASONE FUROATE
     Dosage: 500 MILLIGRAM, 1 EVERY 1 (DAYS)
     Route: 065
  29. ZENHALE [Suspect]
     Active Substance: FORMOTEROL FUMARATE\MOMETASONE FUROATE
     Dosage: 2 DF, EVERY 2 DAYS
  30. ZENHALE [Suspect]
     Active Substance: FORMOTEROL FUMARATE\MOMETASONE FUROATE
     Dosage: 2 DF, 1X/DAY
  31. ERGOCALCIFEROL [Suspect]
     Active Substance: ERGOCALCIFEROL
     Dosage: 20 MILLIGRAM
  32. TIAZAC [Suspect]
     Active Substance: DILTIAZEM HYDROCHLORIDE
     Dosage: 120 MG, EXTENDED RELEASE
     Route: 065
  33. TIAZAC [Suspect]
     Active Substance: DILTIAZEM HYDROCHLORIDE
     Dosage: 15 MILLIGRAM, 1 EVERY 1 (DAYS)
     Route: 065
  34. BUDESONIDE [Suspect]
     Active Substance: BUDESONIDE
     Dosage: UNK
     Route: 048
  35. BUDESONIDE [Suspect]
     Active Substance: BUDESONIDE
     Dosage: INHALATION
     Route: 055
  36. OMNARIS [Suspect]
     Active Substance: CICLESONIDE
     Dosage: 15 MILLIGRAM, 1X/DAY. SPRAY METERED DOSE
     Route: 055
  37. OMNARIS [Suspect]
     Active Substance: CICLESONIDE
     Dosage: SPRAY METERED DOSE
     Route: 055
  38. CALCIUM CARBONATE\CHOLECALCIFEROL [Suspect]
     Active Substance: CALCIUM CARBONATE\CHOLECALCIFEROL
     Dosage: 120 MG
  39. CICLESONIDE [Suspect]
     Active Substance: CICLESONIDE
     Dosage: 15 MG, 1X/DAY
  40. ADVAIR HFA [Suspect]
     Active Substance: FLUTICASONE PROPIONATE\SALMETEROL XINAFOATE
     Dosage: 500 MG, 1X/DAY
  41. ADVAIR HFA [Suspect]
     Active Substance: FLUTICASONE PROPIONATE\SALMETEROL XINAFOATE
     Dosage: 500 MG, 1X/DAY
  42. ADVAIR HFA [Suspect]
     Active Substance: FLUTICASONE PROPIONATE\SALMETEROL XINAFOATE
     Dosage: 2 DF, 2X/DAY
  43. ADVAIR HFA [Suspect]
     Active Substance: FLUTICASONE PROPIONATE\SALMETEROL XINAFOATE
     Dosage: 10 MG
  44. CALCIUM CITRATE [Suspect]
     Active Substance: CALCIUM CITRATE
     Dosage: UNK
     Route: 065
  45. CALCIUM PHOSPHATE [Suspect]
     Active Substance: CALCIUM PHOSPHATE
     Dosage: JACKSON^S MINERAL SALTS CALCIUM PHOSPHATEDOSAGE FORM- PELLET
     Route: 065
  46. MAGNESIUM OXIDE [Suspect]
     Active Substance: MAGNESIUM OXIDE
     Dosage: UNK
     Route: 065
  47. ERGOCALCIFEROL [Suspect]
     Active Substance: ERGOCALCIFEROL
     Dosage: UNK
     Route: 065
  48. LEVOFLOXACIN [Suspect]
     Active Substance: LEVOFLOXACIN
     Dosage: UNK
     Route: 065
  49. TIOTROPIUM BROMIDE [Concomitant]
     Active Substance: TIOTROPIUM BROMIDE
     Dosage: UNK
  50. FLUTICASONE PROPIONATE [Concomitant]
     Active Substance: FLUTICASONE PROPIONATE
     Dosage: UNK
  51. AMOXICILLIN\CLAVULANATE POTASSIUM [Concomitant]
     Active Substance: AMOXICILLIN\CLAVULANATE POTASSIUM
     Dosage: UNK
  52. AMOXICILLIN\CLAVULANATE POTASSIUM [Concomitant]
     Active Substance: AMOXICILLIN\CLAVULANATE POTASSIUM
     Dosage: UNK
     Route: 065
  53. CALCIUM\VITAMIN D [Concomitant]
     Active Substance: CALCIUM\VITAMIN D
     Dosage: ORGEN CALCIUM AND VITAMIN D
  54. CALCIUM\CHOLECALCIFEROL\MAGNESIUM OXIDE [Concomitant]
     Active Substance: CALCIUM\CHOLECALCIFEROL\MAGNESIUM OXIDE
     Dosage: 120 MG
  55. DUTASTERIDE [Concomitant]
     Active Substance: DUTASTERIDE
     Dosage: 0.5 MILLIGRAM
  56. DUTASTERIDE [Concomitant]
     Active Substance: DUTASTERIDE
     Dosage: 10 MG, 1X/DAY
  57. DUTASTERIDE [Concomitant]
     Active Substance: DUTASTERIDE
     Dosage: 5 MG
  58. FORMOTEROL FUMARATE\MOMETASONE FUROATE [Concomitant]
     Active Substance: FORMOTEROL FUMARATE\MOMETASONE FUROATE
     Dosage: 2 DF, 2X/DAY, AEROSOL, METERED DOSE
  59. ROSUVASTATIN CALCIUM [Concomitant]
     Active Substance: ROSUVASTATIN CALCIUM
     Dosage: 20 MG
     Route: 058
  60. ROSUVASTATIN CALCIUM [Concomitant]
     Active Substance: ROSUVASTATIN CALCIUM
     Dosage: 15 MG, 1X/DAY
  61. ROSUVASTATIN CALCIUM [Concomitant]
     Active Substance: ROSUVASTATIN CALCIUM
     Dosage: UNK
     Route: 065
  62. LEVOFLOXACIN [Concomitant]
     Active Substance: LEVOFLOXACIN
     Dosage: 500 MG, 1X/DAY
  63. SPIRIVA [Concomitant]
     Active Substance: TIOTROPIUM BROMIDE MONOHYDRATE
     Dosage: 2 DF
  64. SPIRIVA [Concomitant]
     Active Substance: TIOTROPIUM BROMIDE MONOHYDRATE
     Dosage: 2 DF, 1X/DAY
  65. CHOLECALCIFEROL [Concomitant]
     Active Substance: CHOLECALCIFEROL
     Dosage: UNK
  66. LEVOFLOXACIN [Concomitant]
     Active Substance: LEVOFLOXACIN
     Dosage: 500 MG, 1X/DAY
  67. LEVOFLOXACIN [Concomitant]
     Active Substance: LEVOFLOXACIN
     Dosage: 500 MILLIGRAM
  68. A CLAN [Concomitant]
     Dosage: UNK
  69. DOXAZOSIN MESYLATE [Concomitant]
     Active Substance: DOXAZOSIN MESYLATE
     Dosage: 4 MILLIGRAM
  70. DOXAZOSIN MESYLATE [Concomitant]
     Active Substance: DOXAZOSIN MESYLATE
     Dosage: 5 MG
  71. AMOXICILLIN\CLAVULANATE POTASSIUM [Concomitant]
     Active Substance: AMOXICILLIN\CLAVULANATE POTASSIUM
     Dosage: UNK
  72. CALCIUM CARBONATE [Concomitant]
     Active Substance: CALCIUM CARBONATE
     Dosage: UNK
  73. FORMOTEROL FUMARATE [Concomitant]
     Active Substance: FORMOTEROL FUMARATE
     Dosage: UNK
  74. ALBUTEROL SULFATE [Concomitant]
     Active Substance: ALBUTEROL SULFATE
     Indication: Asthma
     Dosage: 2 DF, 1X/DAY
  75. MOXIFLOXACIN HYDROCHLORIDE [Concomitant]
     Active Substance: MOXIFLOXACIN HYDROCHLORIDE
     Dosage: UNK
  76. FORMOTEROL\MOMETASONE [Concomitant]
     Active Substance: FORMOTEROL\MOMETASONE
     Dosage: UNK
  77. UDB [BUDESONIDE] [Concomitant]
     Dosage: UNK
     Route: 048
  78. UDB [BUDESONIDE] [Concomitant]
     Dosage: UNK
     Route: 055
  79. UDB [BUDESONIDE] [Concomitant]
     Dosage: UNK
  80. SALMETEROL XINAFOATE [Concomitant]
     Active Substance: SALMETEROL XINAFOATE
     Dosage: UNK
     Route: 065
  81. AMOXICILLIN AND CLAVULANATE POTASSIUM [Concomitant]
     Active Substance: AMOXICILLIN\CLAVULANATE POTASSIUM
     Dosage: UNK
  82. CALCIUM CARBONATE\CHOLECALCIFEROL [Concomitant]
     Active Substance: CALCIUM CARBONATE\CHOLECALCIFEROL
     Dosage: UNK
  83. ESCITALOPRAM OXALATE [Concomitant]
     Active Substance: ESCITALOPRAM OXALATE
     Dosage: UNK
  84. DILTIAZEM [Concomitant]
     Active Substance: DILTIAZEM
     Dosage: 12 MILLIGRAM, EXTENDED RELEASE
  85. DILTIAZEM [Concomitant]
     Active Substance: DILTIAZEM
     Dosage: 12 MILLIGRAM, EXTENDED RELEASE
  86. OMNARIS [Concomitant]
     Active Substance: CICLESONIDE
     Dosage: INTRA-NASAL
     Route: 045

REACTIONS (22)
  - Therapeutic product effect incomplete [Unknown]
  - Asthma [Unknown]
  - Full blood count abnormal [Unknown]
  - Condition aggravated [Unknown]
  - Conjunctivitis allergic [Unknown]
  - Wheezing [Unknown]
  - Spirometry abnormal [Unknown]
  - Hypoxia [Unknown]
  - Dust allergy [Unknown]
  - Arteriosclerosis coronary artery [Unknown]
  - Pulmonary embolism [Unknown]
  - Mite allergy [Unknown]
  - Mycotic allergy [Unknown]
  - Productive cough [Unknown]
  - Thrombosis [Unknown]
  - Arteriosclerosis [Unknown]
  - Dyspnoea [Unknown]
  - Nodule [Unknown]
  - Normochromic normocytic anaemia [Unknown]
  - Loss of personal independence in daily activities [Unknown]
  - Sleep disorder due to a general medical condition [Unknown]
  - Skin exfoliation [Unknown]
